FAERS Safety Report 8566952-3 (Version None)
Quarter: 2012Q3

REPORT INFORMATION
  Report Type: 
  Country: None (occurrence: None)
  Receive Date: 20120803
  Receipt Date: 20110930
  Transmission Date: 20120928
  Serious: No
  Sender: FDA-Public Use
  Company Number: US-ABBOTT-11P-163-0859926-00

PATIENT
  Sex: Male
  Weight: 106.69 kg

DRUGS (6)
  1. TEKTURNA [Concomitant]
     Indication: PRODUCT USED FOR UNKNOWN INDICATION
  2. SERTRALINE HYDROCHLORIDE [Concomitant]
     Indication: PRODUCT USED FOR UNKNOWN INDICATION
  3. NIASPAN [Suspect]
     Dosage: 1000 MG - AT BEDTIME
     Dates: start: 20110901
  4. NIASPAN [Suspect]
     Indication: HIGH DENSITY LIPOPROTEIN DECREASED
     Dates: start: 20080901, end: 20110901
  5. EXFORGE [Concomitant]
     Indication: PRODUCT USED FOR UNKNOWN INDICATION
  6. CLONIDINE [Concomitant]
     Indication: PRODUCT USED FOR UNKNOWN INDICATION

REACTIONS (2)
  - FLUSHING [None]
  - PRURITUS [None]
